FAERS Safety Report 25165234 (Version 1)
Quarter: 2025Q2

REPORT INFORMATION
  Report Type: Spontaneous
  Country: RU (occurrence: RU)
  Receive Date: 20250407
  Receipt Date: 20250407
  Transmission Date: 20250717
  Serious: Yes (Hospitalization, Other)
  Sender: CHEPLAPHARM
  Company Number: RU-ASTRAZENECA-202502RUS000944RU

PATIENT
  Age: 31 Year
  Sex: Female
  Weight: 70 kg

DRUGS (3)
  1. QUETIAPINE [Suspect]
     Active Substance: QUETIAPINE
     Route: 048
     Dates: start: 20241227, end: 20241227
  2. VALPROIC ACID [Suspect]
     Active Substance: VALPROIC ACID
     Route: 048
     Dates: start: 20241227, end: 20241227
  3. ETORICOXIB [Suspect]
     Active Substance: ETORICOXIB
     Route: 048
     Dates: start: 20241227, end: 20241227

REACTIONS (7)
  - Asthenia [Unknown]
  - Dizziness [Unknown]
  - Malaise [Unknown]
  - Toxic encephalopathy [Recovering/Resolving]
  - Bipolar disorder [Unknown]
  - Breath odour [Unknown]
  - Toxicity to various agents [Unknown]

NARRATIVE: CASE EVENT DATE: 20241227
